FAERS Safety Report 10173117 (Version 1)
Quarter: 2014Q2

REPORT INFORMATION
  Report Type: Spontaneous
  Country: US (occurrence: US)
  Receive Date: 20140515
  Receipt Date: 20140515
  Transmission Date: 20141212
  Serious: No
  Sender: FDA-Public Use
  Company Number: US-PFIZER INC-2014127833

PATIENT
  Age: 43 Year
  Sex: Female

DRUGS (12)
  1. NORVASC [Suspect]
     Dosage: 10 MG, DAILY
     Route: 048
  2. CEFTRIAXONE [Suspect]
     Dosage: UNK
  3. KETOROLAC TROMETHAMINE [Suspect]
     Dosage: UNK
  4. METHYLPREDNISOLONE [Suspect]
     Dosage: UNK
  5. DOXYCYCLINE HYCLATE [Suspect]
     Dosage: UNK
  6. VANCOCIN [Suspect]
     Indication: STAPHYLOCOCCAL INFECTION
     Dosage: 1000 MG IN SODIUM CHLORIDE 250 ML IVPB, INJECT 1000 MG INTO VEIN EVERY 12 HOURS
     Route: 042
  7. HYDROCHLOROTHIAZIDE [Suspect]
     Dosage: 25 MG, DAILY
     Route: 048
  8. VICODIN [Suspect]
     Indication: PAIN
     Dosage: 5MG/500MG, 1 DF, EVERY 4 HRS, AS NEEDED
     Route: 048
  9. PRINIVIL [Suspect]
     Dosage: 10 MG, DAILY
     Route: 048
  10. ZESTRIL [Suspect]
     Dosage: 10 MG, DAILY
     Route: 048
  11. DAPTOMYCIN [Suspect]
     Dosage: UNK
  12. CEFTAROLINE [Suspect]
     Dosage: UNK

REACTIONS (10)
  - Pyrexia [Unknown]
  - Fatigue [Unknown]
  - Chills [Unknown]
  - Hyperhidrosis [Unknown]
  - Nausea [Unknown]
  - Vomiting [Unknown]
  - Decreased appetite [Unknown]
  - Rash maculo-papular [Unknown]
  - Eosinophils urine present [Unknown]
  - Malaise [Unknown]
